FAERS Safety Report 14398670 (Version 2)
Quarter: 2018Q3

REPORT INFORMATION
  Report Type: Spontaneous
  Country: US (occurrence: US)
  Receive Date: 20180117
  Receipt Date: 20180810
  Transmission Date: 20181010
  Serious: Yes (Other)
  Sender: FDA-Public Use
  Company Number: US-ASTRAZENECA-2018SE04020

PATIENT
  Sex: Female
  Weight: 77.1 kg

DRUGS (35)
  1. NEXIUM [Suspect]
     Active Substance: ESOMEPRAZOLE MAGNESIUM
     Indication: GASTRIC PH DECREASED
     Dosage: 40.0MG UNKNOWN
     Route: 048
     Dates: start: 1995, end: 2016
  2. CLONIDINE. [Concomitant]
     Active Substance: CLONIDINE
     Dosage: 0.3 AMG
     Dates: start: 20160916
  3. CEPHALEXIN. [Concomitant]
     Active Substance: CEPHALEXIN
     Dosage: 250 MG
     Dates: start: 20170203
  4. LEVOFLOXACIN. [Concomitant]
     Active Substance: LEVOFLOXACIN
     Dosage: 500 MG
     Dates: start: 20170203
  5. FLUTICASONE. [Concomitant]
     Active Substance: FLUTICASONE
     Dosage: 50 MCG NASAL SPRAY
     Dates: start: 20170220
  6. CITALOPRAM [Concomitant]
     Active Substance: CITALOPRAM HYDROBROMIDE
     Dosage: 10 MG
     Dates: start: 20170510
  7. NEXIUM [Suspect]
     Active Substance: ESOMEPRAZOLE MAGNESIUM
     Indication: HERNIA
     Dosage: 40.0MG UNKNOWN
     Route: 048
     Dates: start: 20070202
  8. WARFARIN SODIUM. [Concomitant]
     Active Substance: WARFARIN SODIUM
     Dosage: 2 MG
     Dates: start: 20170213
  9. NEXIUM [Suspect]
     Active Substance: ESOMEPRAZOLE MAGNESIUM
     Indication: HERNIA
     Dosage: 40.0MG UNKNOWN
     Route: 048
     Dates: start: 1995, end: 2016
  10. OMEPRAZOLE. [Suspect]
     Active Substance: OMEPRAZOLE
     Indication: DIVERTICULITIS
     Dosage: 40 MG
     Route: 048
     Dates: start: 20091110
  11. OMEPRAZOLE. [Suspect]
     Active Substance: OMEPRAZOLE
     Indication: DIVERTICULITIS
     Dosage: 40 MG
     Route: 065
     Dates: start: 2016
  12. ASPIRIN. [Concomitant]
     Active Substance: ASPIRIN
     Indication: CARDIAC DISORDER
     Dosage: 81 MG
     Dates: start: 20160906
  13. TUMS [Concomitant]
     Active Substance: CALCIUM CARBONATE
     Indication: GASTRIC DISORDER
  14. AMITRIPTYLINE [Concomitant]
     Active Substance: AMITRIPTYLINE
     Dosage: 10 MG
     Dates: start: 20160918
  15. SPIRONOLACTONE. [Concomitant]
     Active Substance: SPIRONOLACTONE
     Dosage: 50 MG
     Dates: start: 20161120
  16. TAMOXIFEN [Concomitant]
     Active Substance: TAMOXIFEN
     Dosage: 20 MG
     Dates: start: 20170416
  17. AZITHROMYCIN ANHYDROUS. [Concomitant]
     Active Substance: AZITHROMYCIN ANHYDROUS
     Dosage: 250 MG
     Dates: start: 20170611
  18. PROMETHAZINE [Concomitant]
     Active Substance: PROMETHAZINE\PROMETHAZINE HYDROCHLORIDE
     Dosage: 12.5 MG
     Dates: start: 20170716
  19. CARVEDILOL. [Concomitant]
     Active Substance: CARVEDILOL
     Dosage: 6.25 MG
     Dates: start: 20160519
  20. GENERLAC [Concomitant]
     Active Substance: LACTULOSE
     Dosage: 10 MG
     Dates: start: 20160919
  21. TRAZODONE [Concomitant]
     Active Substance: TRAZODONE HYDROCHLORIDE
     Dosage: 50 MG
     Dates: start: 20161011
  22. VIMPAT [Concomitant]
     Active Substance: LACOSAMIDE
     Dosage: 50 MG
     Dates: start: 20161201
  23. CLOPIDOGREL [Concomitant]
     Active Substance: CLOPIDOGREL BISULFATE
     Dosage: 7 MG
     Dates: start: 20170618
  24. ZINC. [Concomitant]
     Active Substance: ZINC
     Dates: start: 20170629
  25. BENADRYL [Concomitant]
     Active Substance: DIPHENHYDRAMINE HYDROCHLORIDE
  26. NOVOLOG [Concomitant]
     Active Substance: INSULIN ASPART
     Dates: start: 20160519
  27. HYDRALAZINE [Concomitant]
     Active Substance: HYDRALAZINE HYDROCHLORIDE
     Dosage: 1000 MG
     Dates: start: 20161103
  28. ASPIRIN. [Concomitant]
     Active Substance: ASPIRIN
     Indication: HEADACHE
     Dosage: 81 MG
     Dates: start: 20160906
  29. SPIRONOLACTONE. [Concomitant]
     Active Substance: SPIRONOLACTONE
     Dosage: 50 MG
     Dates: start: 20170628
  30. NEXIUM [Suspect]
     Active Substance: ESOMEPRAZOLE MAGNESIUM
     Indication: GASTRIC PH DECREASED
     Dosage: 40.0MG UNKNOWN
     Route: 048
     Dates: start: 20070202
  31. LEVEMIR [Concomitant]
     Active Substance: INSULIN DETEMIR
     Dates: start: 20160519
  32. AMLODIPINE BESYLATE. [Concomitant]
     Active Substance: AMLODIPINE BESYLATE
     Dosage: 10 MG
     Dates: start: 20160906
  33. ATORVASTATIN [Concomitant]
     Active Substance: ATORVASTATIN
     Dosage: 40 MG
     Dates: start: 20161102
  34. CARVEDILOL. [Concomitant]
     Active Substance: CARVEDILOL
     Dosage: 3.125 MG
     Dates: start: 20170810
  35. PREDNISONE. [Concomitant]
     Active Substance: PREDNISONE
     Dosage: 3.125 MG
     Dates: start: 20170810

REACTIONS (5)
  - Tubulointerstitial nephritis [Unknown]
  - Chronic kidney disease [Unknown]
  - Renal failure [Unknown]
  - End stage renal disease [Not Recovered/Not Resolved]
  - Acute kidney injury [Unknown]
